FAERS Safety Report 22068805 (Version 1)
Quarter: 2023Q1

REPORT INFORMATION
  Report Type: Spontaneous
  Country: US (occurrence: None)
  Receive Date: 20230306
  Receipt Date: 20230306
  Transmission Date: 20230418
  Serious: No
  Sender: FDA-Public Use
  Company Number: None

PATIENT
  Sex: Female

DRUGS (2)
  1. ICATIBANT ACETATE [Suspect]
     Active Substance: ICATIBANT ACETATE
     Indication: Immune system disorder
     Dosage: 30MG AS NEEDED SUBCUTANEOUS
     Route: 058
     Dates: start: 20220921
  2. TAKHZYRO [Suspect]
     Active Substance: LANADELUMAB-FLYO

REACTIONS (2)
  - Abdominal distension [None]
  - Ill-defined disorder [None]
